FAERS Safety Report 9832659 (Version 1)
Quarter: 2014Q1

REPORT INFORMATION
  Report Type: Spontaneous
  Country: IN (occurrence: IN)
  Receive Date: 20140121
  Receipt Date: 20140121
  Transmission Date: 20141002
  Serious: Yes (Hospitalization)
  Sender: FDA-Public Use
  Company Number: IN-ASTRAZENECA-2014SE02571

PATIENT
  Age: 32 Year
  Sex: Male

DRUGS (9)
  1. QUETIAPINE [Suspect]
     Indication: SLEEP DISORDER
     Route: 048
  2. QUETIAPINE [Suspect]
     Indication: ANXIETY
     Route: 048
  3. QUETIAPINE [Suspect]
     Indication: SLEEP DISORDER
     Route: 048
  4. QUETIAPINE [Suspect]
     Indication: ANXIETY
     Route: 048
  5. AMITRIPTYLINE [Concomitant]
     Indication: SLEEP DISORDER
  6. SODIUM VALPROATE [Concomitant]
  7. SODIUM VALPROATE [Concomitant]
  8. MIRTAZAPINE [Concomitant]
  9. CLONAZEPAM [Concomitant]

REACTIONS (9)
  - Irritability [Unknown]
  - Sleep disorder [Unknown]
  - Dysphoria [Unknown]
  - Drug dependence [Unknown]
  - Intentional drug misuse [Unknown]
  - Agitation [Unknown]
  - Restlessness [Unknown]
  - Drug withdrawal syndrome [Unknown]
  - Off label use [Unknown]
